FAERS Safety Report 11441109 (Version 2)
Quarter: 2015Q4

REPORT INFORMATION
  Report Type: Spontaneous
  Country: US (occurrence: US)
  Receive Date: 20150901
  Receipt Date: 20151006
  Transmission Date: 20160304
  Serious: Yes (Death)
  Sender: FDA-Public Use
  Company Number: US-ACTAVIS-2015-18394

PATIENT
  Age: 47 Year
  Sex: Female

DRUGS (2)
  1. HYDROCODONE BITARTRATE AND ACETAMINOPHEN [Concomitant]
     Active Substance: ACETAMINOPHEN\HYDROCODONE BITARTRATE
     Indication: PAIN
     Dosage: UNK
     Route: 065
  2. GABAPENTIN (AELLC) [Suspect]
     Active Substance: GABAPENTIN
     Indication: ACCIDENTAL OVERDOSE
     Dosage: 15.6 G, TOTAL
     Route: 048

REACTIONS (4)
  - Toxicity to various agents [Fatal]
  - Pneumonia [Fatal]
  - Respiratory depression [Fatal]
  - Accidental overdose [Fatal]
